FAERS Safety Report 24432227 (Version 1)
Quarter: 2024Q4

REPORT INFORMATION
  Report Type: Spontaneous
  Country: IR (occurrence: IR)
  Receive Date: 20241014
  Receipt Date: 20241014
  Transmission Date: 20250114
  Serious: Yes (Other)
  Sender: AMGEN
  Company Number: IR-AMGEN-IRNSP2024200251

PATIENT
  Age: 13 Year
  Sex: Female

DRUGS (7)
  1. FILGRASTIM [Suspect]
     Active Substance: FILGRASTIM
     Indication: Agranulocytosis
     Dosage: 5 MICROGRAM/KILOGRAM, QD
     Route: 058
  2. FILGRASTIM [Suspect]
     Active Substance: FILGRASTIM
     Indication: Off label use
  3. POTASSIUM IODIDE [Concomitant]
     Active Substance: POTASSIUM IODIDE
     Indication: Agranulocytosis
     Dosage: UNK, Q12H, 2 DROPS EVERY 12 HOURS
     Route: 065
  4. CHOLESTYRAMINE [Concomitant]
     Active Substance: CHOLESTYRAMINE
     Indication: Agranulocytosis
     Dosage: 12 GRAM, QD (260 MG/KG/DAY DIVIDED IN 03 DAYS)
     Route: 065
  5. LITHIUM [Concomitant]
     Active Substance: LITHIUM
     Indication: Agranulocytosis
     Dosage: 900 MILLIGRAM, QD, (20 MGFTLDAY IN 3 DIVIDED DOSES
     Route: 065
  6. PROPRANOLOL [Concomitant]
     Active Substance: PROPRANOLOL HYDROCHLORIDE
     Indication: Graves^ disease
     Dosage: 40 MILLIGRAM, 1 MILLIGRAM PER KILOGRAM
     Route: 065
  7. SODIUM IODIDE I-131 [Concomitant]
     Active Substance: SODIUM IODIDE I-131
     Dosage: UNK
     Route: 065

REACTIONS (3)
  - Hypothyroidism [Unknown]
  - Off label use [Unknown]
  - Drug effective for unapproved indication [Unknown]
